FAERS Safety Report 14034162 (Version 1)
Quarter: 2017Q4

REPORT INFORMATION
  Report Type: Spontaneous
  Country: US (occurrence: US)
  Receive Date: 20171003
  Receipt Date: 20171003
  Transmission Date: 20180321
  Serious: No
  Sender: FDA-Public Use
  Company Number: US-009507513-1709USA007850

PATIENT
  Sex: Female

DRUGS (3)
  1. FOLLISTIM [Suspect]
     Active Substance: FOLLITROPIN
     Indication: INFERTILITY FEMALE
     Dosage: AS DIRECTED, DAILY
     Route: 058
     Dates: start: 20160805
  2. GANIRELIX ACETATE INJECTION [Suspect]
     Active Substance: GANIRELIX ACETATE
     Indication: INFERTILITY FEMALE
     Dosage: AS DIRECTED, DAILY
     Route: 058
     Dates: start: 20170824
  3. FOLLISTIM [Suspect]
     Active Substance: FOLLITROPIN
     Dosage: AS DIRECTED, DAILY
     Route: 058
     Dates: start: 20160805

REACTIONS (5)
  - Injection site pruritus [Recovered/Resolved]
  - Injection site erythema [Recovered/Resolved]
  - Product dosage form confusion [Unknown]
  - Injection site irritation [Recovered/Resolved]
  - Incorrect dose administered [Unknown]

NARRATIVE: CASE EVENT DATE: 2017
